FAERS Safety Report 23473404 (Version 1)
Quarter: 2024Q1

REPORT INFORMATION
  Report Type: Spontaneous
  Country: JP (occurrence: JP)
  Receive Date: 20240203
  Receipt Date: 20240203
  Transmission Date: 20240409
  Serious: Yes (Other)
  Sender: FDA-Public Use
  Company Number: JP-Ipsen Biopharmaceuticals, Inc.-2023-26762

PATIENT
  Age: 30 Year
  Sex: Female

DRUGS (1)
  1. LANREOTIDE ACETATE [Suspect]
     Active Substance: LANREOTIDE ACETATE
     Indication: Thyroid stimulating hormone-producing pituitary tumour
     Dosage: 120 MG
     Route: 058

REACTIONS (2)
  - Gestational diabetes [Recovering/Resolving]
  - Exposure during pregnancy [Unknown]
